FAERS Safety Report 8378014-9 (Version None)
Quarter: 2012Q2

REPORT INFORMATION
  Report Type: 
  Country: None (occurrence: None)
  Receive Date: 20120522
  Receipt Date: 20120509
  Transmission Date: 20120825
  Serious: Yes (Death, Hospitalization)
  Sender: FDA-Public Use
  Company Number: TW-MYLANLABS-2012S1009660

PATIENT
  Age: 49 Year
  Sex: Female

DRUGS (3)
  1. EPIRUBICIN [Suspect]
     Indication: BREAST CANCER STAGE II
     Route: 065
  2. CYTOXAN [Suspect]
     Indication: BREAST CANCER STAGE II
     Route: 065
  3. FLUOROURACIL [Suspect]
     Indication: BREAST CANCER STAGE II
     Route: 065

REACTIONS (1)
  - ACUTE LYMPHOCYTIC LEUKAEMIA [None]
